FAERS Safety Report 7372971-5 (Version None)
Quarter: 2011Q1

REPORT INFORMATION
  Report Type: 
  Country: None (occurrence: None)
  Receive Date: 20110324
  Receipt Date: 20110314
  Transmission Date: 20110831
  Serious: Yes (Death)
  Sender: FDA-Public Use
  Company Number: US-CELGENEUS-163-21880-10123337

PATIENT
  Sex: Male

DRUGS (3)
  1. REVLIMID [Suspect]
     Indication: MULTIPLE MYELOMA
     Dosage: 25 MILLIGRAM
     Route: 048
     Dates: start: 20100623, end: 20100804
  2. COREG [Concomitant]
     Dosage: 25 MILLIGRAM
     Route: 065
  3. LASIX [Concomitant]
     Dosage: 40 MILLIGRAM
     Route: 065

REACTIONS (1)
  - HEPATIC CIRRHOSIS [None]
